FAERS Safety Report 11941435 (Version 4)
Quarter: 2016Q2

REPORT INFORMATION
  Report Type: Report from Study
  Country: US (occurrence: US)
  Receive Date: 20160122
  Receipt Date: 20160609
  Transmission Date: 20160815
  Serious: Yes (Death, Hospitalization, Other)
  Sender: FDA-Public Use
  Company Number: US-ARIAD PHARMACEUTICALS, INC-2015US004483

PATIENT
  Sex: Female

DRUGS (3)
  1. ICLUSIG [Suspect]
     Active Substance: PONATINIB
     Indication: CHRONIC MYELOID LEUKAEMIA
     Dosage: 30 MG, QD
     Route: 048
  2. ICLUSIG [Suspect]
     Active Substance: PONATINIB
     Dosage: 15 MG, QD
     Route: 048
     Dates: start: 20150115
  3. ICLUSIG [Suspect]
     Active Substance: PONATINIB
     Dosage: 15 MG, QD

REACTIONS (9)
  - Pneumonia fungal [Unknown]
  - Enterococcal bacteraemia [Unknown]
  - Transplant [Unknown]
  - Gastrointestinal toxicity [Unknown]
  - Pulmonary oedema [Not Recovered/Not Resolved]
  - Hepatosplenic candidiasis [Unknown]
  - Neuropathy peripheral [Not Recovered/Not Resolved]
  - Bone marrow failure [Unknown]
  - Death [Fatal]
